FAERS Safety Report 10266301 (Version 1)
Quarter: 2014Q2

REPORT INFORMATION
  Report Type: Spontaneous
  Country: US (occurrence: US)
  Receive Date: 20140627
  Receipt Date: 20140627
  Transmission Date: 20141212
  Serious: No
  Sender: FDA-Public Use
  Company Number: US-ASTRAZENECA-2014SE19638

PATIENT
  Age: 38 Year
  Sex: Female
  Weight: 113.4 kg

DRUGS (7)
  1. SEROQUEL [Suspect]
     Indication: BIPOLAR DISORDER
     Dosage: UNKNOWN DOSE AT NIGHT
     Route: 048
     Dates: start: 2012, end: 2013
  2. ADDERALL [Concomitant]
     Dosage: 20 MG WKND TID
     Route: 048
  3. ALPRAZOLAM [Concomitant]
     Indication: POST-TRAUMATIC STRESS DISORDER
     Route: 048
  4. ALPRAZOLAM [Concomitant]
     Indication: ATTENTION DEFICIT/HYPERACTIVITY DISORDER
     Route: 048
  5. WELBUTRIN [Concomitant]
     Indication: AFFECTIVE DISORDER
     Route: 048
  6. OXCARBAZEPINE [Concomitant]
     Route: 048
  7. AMBIEN [Concomitant]
     Indication: INSOMNIA
     Route: 048

REACTIONS (7)
  - Fall [Not Recovered/Not Resolved]
  - Hyperhidrosis [Not Recovered/Not Resolved]
  - Thyroid disorder [Not Recovered/Not Resolved]
  - Heart rate irregular [Not Recovered/Not Resolved]
  - Feeling drunk [Unknown]
  - Blood pressure abnormal [Unknown]
  - Weight increased [Not Recovered/Not Resolved]
